FAERS Safety Report 6779434-6 (Version None)
Quarter: 2010Q2

REPORT INFORMATION
  Report Type: 
  Country: None (occurrence: None)
  Receive Date: 20100618
  Receipt Date: 20100610
  Transmission Date: 20101027
  Serious: Yes (Other)
  Sender: FDA-Public Use
  Company Number: US-B.I. PHARMACEUTICALS,INC./RIDGEFIELD-2010-BP-06587BP

PATIENT
  Age: 56 Year
  Sex: Female

DRUGS (4)
  1. DULCOLAX [Suspect]
     Indication: COLONOSCOPY
     Dosage: 10 MG
     Route: 048
     Dates: start: 20100608, end: 20100608
  2. CRESTOR [Concomitant]
     Indication: BLOOD CHOLESTEROL INCREASED
  3. AMBIEN [Concomitant]
     Indication: SLEEP DISORDER
  4. PROZAC [Concomitant]
     Indication: DEPRESSION

REACTIONS (3)
  - DIARRHOEA [None]
  - RECTAL HAEMORRHAGE [None]
  - VOMITING [None]
